FAERS Safety Report 9577652 (Version 1)
Quarter: 2013Q4

REPORT INFORMATION
  Report Type: Spontaneous
  Country: US (occurrence: US)
  Receive Date: 20131001
  Receipt Date: 20131001
  Transmission Date: 20140711
  Serious: No
  Sender: FDA-Public Use
  Company Number: US-AMGEN-USASP2013008994

PATIENT
  Sex: Female

DRUGS (8)
  1. ENBREL [Suspect]
     Indication: PSORIATIC ARTHROPATHY
     Dosage: 50 MG, QWK
     Route: 058
  2. LISINOPRIL [Concomitant]
     Dosage: 2.5 MG, UNK
  3. SIMVASTATIN [Concomitant]
     Dosage: 20 MG, UNK
  4. VITAMIN D                          /00107901/ [Concomitant]
     Dosage: 1000 UNIT, UNK
  5. BIOTIN [Concomitant]
     Dosage: 5000 UNK, UNK
  6. MULTIVITAMINS, PLAIN [Concomitant]
     Dosage: UNK
  7. CALCIUM + D3                       /00944201/ [Concomitant]
     Dosage: 1000 UNK, UNK
  8. ASPIRIN [Concomitant]
     Dosage: 81 MG, UNK

REACTIONS (1)
  - Drug ineffective [Unknown]
